FAERS Safety Report 9885556 (Version 2)
Quarter: 2014Q3

REPORT INFORMATION
  Report Type: Spontaneous
  Country: US (occurrence: US)
  Receive Date: 20140210
  Receipt Date: 20140804
  Transmission Date: 20150326
  Serious: Yes (Death, Other)
  Sender: FDA-Public Use
  Company Number: US-009507513-1402USA004191

PATIENT
  Sex: Female
  Weight: 120.18 kg

DRUGS (1)
  1. NUVARING [Suspect]
     Active Substance: ETHINYL ESTRADIOL\ETONOGESTREL
     Indication: CONTRACEPTION
     Route: 067

REACTIONS (10)
  - Pulmonary congestion [Unknown]
  - Arteriosclerosis coronary artery [Unknown]
  - Coronary artery stenosis [Unknown]
  - Hepatosplenomegaly [Unknown]
  - Pulmonary embolism [Fatal]
  - Thrombophlebitis superficial [Unknown]
  - Dilatation ventricular [Unknown]
  - Drug screen positive [Unknown]
  - Hepatic steatosis [Unknown]
  - Pulmonary oedema [Unknown]

NARRATIVE: CASE EVENT DATE: 20131010
